FAERS Safety Report 5469547-3 (Version None)
Quarter: 2007Q3

REPORT INFORMATION
  Report Type: 
  Country: None (occurrence: None)
  Receive Date: 20070927
  Receipt Date: 20070920
  Transmission Date: 20080115
  Serious: Yes (Other)
  Sender: FDA-Public Use
  Company Number: B0488737A

PATIENT
  Age: 4 Year
  Sex: Male

DRUGS (3)
  1. SERETIDE [Suspect]
     Indication: ASTHMA
     Dosage: 50MCG FOUR TIMES PER DAY
     Route: 048
     Dates: start: 20070727
  2. SEREVENT [Concomitant]
     Dates: start: 20061001, end: 20070701
  3. VENTOLIN [Concomitant]

REACTIONS (4)
  - AGGRESSION [None]
  - INSOMNIA [None]
  - NIGHTMARE [None]
  - PSYCHOMOTOR HYPERACTIVITY [None]
